FAERS Safety Report 10900243 (Version 1)
Quarter: 2015Q1

REPORT INFORMATION
  Report Type: Spontaneous
  Country: GB (occurrence: GB)
  Receive Date: 20150310
  Receipt Date: 20150310
  Transmission Date: 20150721
  Serious: Yes (Other)
  Sender: FDA-Public Use
  Company Number: GB-ACCORD-029067

PATIENT
  Age: 40 Year
  Sex: Female
  Weight: 66.22 kg

DRUGS (1)
  1. ESCITALOPRAM [Suspect]
     Active Substance: ESCITALOPRAM OXALATE
     Indication: ANXIETY
     Route: 048
     Dates: start: 20140926, end: 20150129

REACTIONS (3)
  - Anxiety [Recovering/Resolving]
  - Depressed mood [Recovering/Resolving]
  - Product substitution issue [Unknown]
